FAERS Safety Report 4392573-2 (Version None)
Quarter: 2004Q3

REPORT INFORMATION
  Report Type: 
  Country: None (occurrence: None)
  Receive Date: 20040708
  Receipt Date: 20040701
  Transmission Date: 20050211
  Serious: Yes (Hospitalization)
  Sender: FDA-Public Use
  Company Number: 200412067EU

PATIENT
  Age: 80 Year
  Sex: Male

DRUGS (9)
  1. FLAGYL [Suspect]
     Indication: DRUG USE FOR UNKNOWN INDICATION
     Route: 048
     Dates: start: 20030101, end: 20040105
  2. TRIATEC [Concomitant]
  3. ACTRAPID [Concomitant]
  4. INSULATARD NPH HUMAN [Concomitant]
  5. DUROFERON [Concomitant]
  6. COTRIM [Concomitant]
  7. TENORMIN [Concomitant]
  8. FUROSEMIDE [Concomitant]
  9. TROMBYL [Concomitant]

REACTIONS (4)
  - BALANCE DISORDER [None]
  - FALL [None]
  - NEUROPATHY [None]
  - SENSORY DISTURBANCE [None]
